FAERS Safety Report 11186813 (Version 1)
Quarter: 2015Q2

REPORT INFORMATION
  Report Type: Spontaneous
  Country: JP (occurrence: JP)
  Receive Date: 20150614
  Receipt Date: 20150614
  Transmission Date: 20150821
  Serious: Yes (Hospitalization, Other)
  Sender: FDA-Public Use
  Company Number: JP-JNJFOC-20150603561

PATIENT
  Age: 16 Year
  Sex: Male

DRUGS (25)
  1. ACETAMINOPHEN. [Suspect]
     Active Substance: ACETAMINOPHEN
     Indication: HEADACHE
     Route: 065
  2. CLARITHROMYCIN. [Suspect]
     Active Substance: CLARITHROMYCIN
     Indication: PYREXIA
     Route: 065
  3. TRANEXAMIC ACID. [Suspect]
     Active Substance: TRANEXAMIC ACID
     Indication: ABDOMINAL DISTENSION
     Route: 065
  4. MAOBUSHISAISHINTO [Suspect]
     Active Substance: HERBALS
     Indication: PYREXIA
     Route: 065
  5. CLARITHROMYCIN. [Suspect]
     Active Substance: CLARITHROMYCIN
     Indication: ABDOMINAL DISTENSION
     Route: 065
  6. IBUPROFEN. [Suspect]
     Active Substance: IBUPROFEN
     Indication: ABDOMINAL DISTENSION
     Route: 065
  7. LYSOZYME HYDROCHLORIDE [Suspect]
     Active Substance: LYSOZYME HYDROCHLORIDE
     Indication: ABDOMINAL DISTENSION
     Route: 065
  8. TRANEXAMIC ACID. [Suspect]
     Active Substance: TRANEXAMIC ACID
     Indication: PYREXIA
     Route: 065
  9. CARBOCISTEINE [Suspect]
     Active Substance: CARBOCYSTEINE
     Indication: ABDOMINAL PAIN
     Route: 065
  10. IBUPROFEN. [Suspect]
     Active Substance: IBUPROFEN
     Indication: ABDOMINAL PAIN
     Route: 065
  11. CEFCAPENE PIVOXIL HYDROCHLORIDE [Suspect]
     Active Substance: CEFCAPENE PIVOXIL HYDROCHLORIDE
     Indication: ABDOMINAL DISTENSION
     Route: 065
  12. CLARITHROMYCIN. [Suspect]
     Active Substance: CLARITHROMYCIN
     Indication: ABDOMINAL PAIN
     Route: 065
  13. CARBOCISTEINE [Suspect]
     Active Substance: CARBOCYSTEINE
     Indication: ABDOMINAL DISTENSION
     Route: 065
  14. ACETAMINOPHEN. [Suspect]
     Active Substance: ACETAMINOPHEN
     Indication: ABDOMINAL PAIN
     Route: 065
  15. ACETAMINOPHEN. [Suspect]
     Active Substance: ACETAMINOPHEN
     Indication: PYREXIA
     Route: 065
  16. ACETAMINOPHEN. [Suspect]
     Active Substance: ACETAMINOPHEN
     Indication: ABDOMINAL DISTENSION
     Route: 065
  17. CEFCAPENE PIVOXIL HYDROCHLORIDE [Suspect]
     Active Substance: CEFCAPENE PIVOXIL HYDROCHLORIDE
     Indication: ABDOMINAL PAIN
     Route: 065
  18. TRANEXAMIC ACID. [Suspect]
     Active Substance: TRANEXAMIC ACID
     Indication: ABDOMINAL PAIN
     Route: 065
  19. MAOBUSHISAISHINTO [Suspect]
     Active Substance: HERBALS
     Indication: ABDOMINAL PAIN
     Route: 065
  20. LYSOZYME HYDROCHLORIDE [Suspect]
     Active Substance: LYSOZYME HYDROCHLORIDE
     Indication: ABDOMINAL PAIN
     Route: 065
  21. LYSOZYME HYDROCHLORIDE [Suspect]
     Active Substance: LYSOZYME HYDROCHLORIDE
     Indication: PYREXIA
     Route: 065
  22. CEFCAPENE PIVOXIL HYDROCHLORIDE [Suspect]
     Active Substance: CEFCAPENE PIVOXIL HYDROCHLORIDE
     Indication: PYREXIA
     Route: 065
  23. CARBOCISTEINE [Suspect]
     Active Substance: CARBOCYSTEINE
     Indication: PYREXIA
     Route: 065
  24. MAOBUSHISAISHINTO [Suspect]
     Active Substance: HERBALS
     Indication: ABDOMINAL DISTENSION
     Route: 065
  25. IBUPROFEN. [Suspect]
     Active Substance: IBUPROFEN
     Indication: PYREXIA
     Route: 065

REACTIONS (15)
  - Drug-induced liver injury [Unknown]
  - Human herpesvirus 6 infection [None]
  - Lymphocyte stimulation test positive [None]
  - Leukocytosis [None]
  - Gallbladder disorder [None]
  - Pleural effusion [Recovering/Resolving]
  - Inflammation [None]
  - Procalcitonin increased [Recovering/Resolving]
  - Hyponatraemia [Recovering/Resolving]
  - Periportal oedema [None]
  - Hepatic necrosis [None]
  - Haemoglobin increased [None]
  - Prothrombin time prolonged [None]
  - Hepatic function abnormal [None]
  - Ascites [None]
